FAERS Safety Report 13265486 (Version 5)
Quarter: 2017Q2

REPORT INFORMATION
  Report Type: Spontaneous
  Country: US (occurrence: US)
  Receive Date: 20170223
  Receipt Date: 20170502
  Transmission Date: 20170830
  Serious: Yes (Hospitalization, Other)
  Sender: FDA-Public Use
  Company Number: US-PFIZER INC-2017079195

PATIENT
  Age: 47 Year
  Sex: Female
  Weight: 85.73 kg

DRUGS (2)
  1. NEURONTIN [Suspect]
     Active Substance: GABAPENTIN
     Indication: TRIGEMINAL NEURALGIA
  2. NEURONTIN [Suspect]
     Active Substance: GABAPENTIN
     Indication: DIABETIC NEUROPATHY
     Dosage: UNK, AT NIGHT

REACTIONS (8)
  - Dyspnoea [Unknown]
  - Swelling [Unknown]
  - Drug hypersensitivity [Unknown]
  - Apparent death [Unknown]
  - Drug ineffective for unapproved indication [Unknown]
  - Dysphagia [Unknown]
  - Pain [Unknown]
  - Disturbance in attention [Unknown]
